FAERS Safety Report 13929664 (Version 1)
Quarter: 2017Q3

REPORT INFORMATION
  Report Type: Spontaneous
  Country: FR (occurrence: FR)
  Receive Date: 20170901
  Receipt Date: 20170901
  Transmission Date: 20171127
  Serious: Yes (Other)
  Sender: FDA-Public Use
  Company Number: FR-MERCK KGAA-2025435

PATIENT
  Sex: Female

DRUGS (1)
  1. NOVOTHYROX [Suspect]
     Active Substance: LEVOTHYROXINE SODIUM
     Indication: PRODUCT USED FOR UNKNOWN INDICATION

REACTIONS (9)
  - Alopecia [None]
  - Constipation [None]
  - Hyperthyroidism [None]
  - Fatigue [None]
  - Dyspnoea [None]
  - Atrial fibrillation [None]
  - Arthralgia [None]
  - Sleep disorder [None]
  - Weight increased [None]
